FAERS Safety Report 7150757-4 (Version None)
Quarter: 2010Q4

REPORT INFORMATION
  Report Type: 
  Country: None (occurrence: None)
  Receive Date: 20101210
  Receipt Date: 20101201
  Transmission Date: 20110411
  Serious: Yes (Other)
  Sender: FDA-Public Use
  Company Number: CA-JNJFOC-20101202219

PATIENT
  Sex: Male

DRUGS (2)
  1. REMICADE [Suspect]
     Indication: PSORIASIS
     Route: 042
  2. AVAMYS [Concomitant]
     Route: 065

REACTIONS (3)
  - FALL [None]
  - SKIN LACERATION [None]
  - WOUND INFECTION [None]
